FAERS Safety Report 5135273-3 (Version None)
Quarter: 2006Q4

REPORT INFORMATION
  Report Type: 
  Country: None (occurrence: None)
  Receive Date: 20061026
  Receipt Date: 20061019
  Transmission Date: 20070319
  Serious: Yes (Death, Other)
  Sender: FDA-Public Use
  Company Number: TR-AVENTIS-200615340EU

PATIENT
  Age: 92 Year
  Sex: Female
  Weight: 76 kg

DRUGS (6)
  1. ENOXAPARIN SODIUM [Suspect]
     Indication: THROMBOSIS PROPHYLAXIS
     Route: 058
     Dates: start: 20060821, end: 20060831
  2. ENOXAPARIN SODIUM [Suspect]
     Route: 058
     Dates: start: 20060902, end: 20060904
  3. BITERAL [Concomitant]
     Route: 042
     Dates: start: 20060901, end: 20060906
  4. PIPERACILLIN AND TAZOBACTAM [Concomitant]
     Route: 042
     Dates: start: 20060902, end: 20060906
  5. NOVALGIN                           /00039501/ [Concomitant]
     Route: 042
     Dates: start: 20060820, end: 20060906
  6. METRONIDAZOLE [Concomitant]
     Route: 042
     Dates: start: 20060902, end: 20060906

REACTIONS (12)
  - ASPARTATE AMINOTRANSFERASE INCREASED [None]
  - BLOOD BILIRUBIN INCREASED [None]
  - BLOOD LACTATE DEHYDROGENASE INCREASED [None]
  - BLOOD UREA INCREASED [None]
  - GAMMA-GLUTAMYLTRANSFERASE INCREASED [None]
  - HAEMOGLOBIN DECREASED [None]
  - HAEMORRHAGE [None]
  - MULTI-ORGAN FAILURE [None]
  - MYOCARDIAL INFARCTION [None]
  - POST PROCEDURAL HAEMORRHAGE [None]
  - PROTHROMBIN TIME PROLONGED [None]
  - SEPTIC SHOCK [None]
